FAERS Safety Report 12077130 (Version 1)
Quarter: 2016Q1

REPORT INFORMATION
  Report Type: Spontaneous
  Country: US (occurrence: US)
  Receive Date: 20160215
  Receipt Date: 20160215
  Transmission Date: 20160526
  Serious: No
  Sender: FDA-Public Use
  Company Number: US-BAYER-2016-019146

PATIENT
  Age: 38 Year
  Sex: Female
  Weight: 124.72 kg

DRUGS (3)
  1. MENSTRIDOL [Suspect]
     Active Substance: NAPROXEN SODIUM
     Indication: ABDOMINAL DISTENSION
     Dosage: 2 DF, PRN
     Route: 048
  2. MENSTRIDOL [Suspect]
     Active Substance: NAPROXEN SODIUM
     Indication: DYSMENORRHOEA
     Dosage: 2 DF, PRN
     Route: 048
  3. MENSTRIDOL [Suspect]
     Active Substance: NAPROXEN SODIUM
     Indication: DYSMENORRHOEA
     Dosage: 2 UNK, UNK
     Route: 048

REACTIONS (5)
  - Extra dose administered [None]
  - Therapeutic response unexpected [None]
  - Product container issue [None]
  - Product use issue [None]
  - Drug effect incomplete [None]
